FAERS Safety Report 26162737 (Version 2)
Quarter: 2025Q4

REPORT INFORMATION
  Report Type: Report from Study
  Country: CO (occurrence: CO)
  Receive Date: 20251216
  Receipt Date: 20251230
  Transmission Date: 20260117
  Serious: Yes (Hospitalization, Other)
  Sender: ALEXION PHARMACEUTICALS
  Company Number: CO-AstraZeneca-CH-01013385A

PATIENT
  Age: 18 Year
  Sex: Male

DRUGS (1)
  1. RAVULIZUMAB [Suspect]
     Active Substance: RAVULIZUMAB
     Indication: Atypical haemolytic uraemic syndrome
     Dosage: 2400 MILLIGRAM, Q2W
     Dates: start: 20251122

REACTIONS (3)
  - Device related infection [Not Recovered/Not Resolved]
  - Pneumonia [Not Recovered/Not Resolved]
  - Bacteraemia [Not Recovered/Not Resolved]

NARRATIVE: CASE EVENT DATE: 20251208
